FAERS Safety Report 5978676-7 (Version None)
Quarter: 2008Q4

REPORT INFORMATION
  Report Type: 
  Country: None (occurrence: None)
  Receive Date: 20081204
  Receipt Date: 20081201
  Transmission Date: 20090506
  Serious: Yes (Death)
  Sender: FDA-Public Use
  Company Number: US-ASTRAZENECA-2008AC03083

PATIENT
  Sex: Female

DRUGS (6)
  1. PROPOFOL [Suspect]
     Route: 042
  2. BENZODIAZEPINE [Concomitant]
     Indication: STATUS EPILEPTICUS
     Route: 042
  3. PHENYTOIN [Concomitant]
     Indication: STATUS EPILEPTICUS
     Route: 042
  4. PHENOBARBITAL TAB [Concomitant]
     Dosage: LOADING DOSE
  5. MIDAZOLAM HCL [Concomitant]
     Route: 042
  6. PENTOBARBITAL CAP [Concomitant]
     Route: 042

REACTIONS (1)
  - PROPOFOL INFUSION SYNDROME [None]
